FAERS Safety Report 5678295-6 (Version None)
Quarter: 2008Q1

REPORT INFORMATION
  Report Type: 
  Country: None (occurrence: None)
  Receive Date: 20080320
  Receipt Date: 20080313
  Transmission Date: 20080703
  Serious: Yes (Other)
  Sender: FDA-Public Use
  Company Number: CFNTY-204

PATIENT
  Age: 72 Year
  Sex: Male

DRUGS (1)
  1. SPECTRACEF TABLETS (CEFDITOREN PIVOXIL) [Suspect]
     Dosage: 800 MG/DAY ORAL
     Route: 048
     Dates: start: 20080201

REACTIONS (1)
  - HALLUCINATION, VISUAL [None]
